FAERS Safety Report 7907049-2 (Version None)
Quarter: 2011Q4

REPORT INFORMATION
  Report Type: 
  Country: None (occurrence: None)
  Receive Date: 20111109
  Receipt Date: 20111109
  Transmission Date: 20120403
  Serious: Yes (Hospitalization)
  Sender: FDA-Public Use
  Company Number: None

PATIENT
  Sex: Female

DRUGS (1)
  1. XELODA [Suspect]
     Indication: BREAST CANCER
     Dosage: 1500MG Q 12 HRS PO
     Route: 048
     Dates: start: 20111011, end: 20111025

REACTIONS (2)
  - DIARRHOEA [None]
  - DEHYDRATION [None]
